FAERS Safety Report 14545282 (Version 6)
Quarter: 2018Q1

REPORT INFORMATION
  Report Type: Spontaneous
  Country: IT (occurrence: IT)
  Receive Date: 20180218
  Receipt Date: 20180319
  Transmission Date: 20180509
  Serious: Yes (Hospitalization, Other)
  Sender: FDA-Public Use
  Company Number: PHHY2017IT187858

PATIENT
  Age: 59 Year
  Sex: Female

DRUGS (14)
  1. DEXAMETHASONE. [Suspect]
     Active Substance: DEXAMETHASONE
     Indication: ACUTE LYMPHOCYTIC LEUKAEMIA
     Route: 037
  2. METHOTREXATE. [Suspect]
     Active Substance: METHOTREXATE
     Indication: PRODUCT USED FOR UNKNOWN INDICATION
     Dosage: UNK
     Route: 037
  3. CYTOSINE ARABINOSIDE [Suspect]
     Active Substance: CYTARABINE
     Indication: ACUTE LYMPHOCYTIC LEUKAEMIA
     Route: 037
  4. ASPARAGINASE [Concomitant]
     Active Substance: ASPARAGINASE
     Indication: ACUTE LYMPHOCYTIC LEUKAEMIA
     Route: 065
  5. VINCRISTINE [Suspect]
     Active Substance: VINCRISTINE
     Indication: ACUTE LYMPHOCYTIC LEUKAEMIA
     Dosage: UNK
     Route: 065
  6. VORICONAZOLE. [Suspect]
     Active Substance: VORICONAZOLE
     Dosage: 4 MG/KG, BID
     Route: 042
  7. IDARUBICIN [Suspect]
     Active Substance: IDARUBICIN
     Indication: ACUTE LYMPHOCYTIC LEUKAEMIA
     Dosage: UNK
     Route: 065
  8. G-CSF [Concomitant]
     Active Substance: GRANULOCYTE COLONY-STIMULATING FACTOR NOS
     Indication: PRODUCT USED FOR UNKNOWN INDICATION
     Route: 065
     Dates: start: 201612
  9. VORICONAZOLE. [Suspect]
     Active Substance: VORICONAZOLE
     Indication: FUSARIUM INFECTION
     Dosage: 6 MG/KG, BID
     Route: 042
  10. AMPHOTERICIN B. [Suspect]
     Active Substance: AMPHOTERICIN B
     Indication: FUSARIUM INFECTION
     Dosage: 5 MG/KG, QD
     Route: 065
  11. POSACONAZOLE [Concomitant]
     Active Substance: POSACONAZOLE
     Indication: ANTIFUNGAL PROPHYLAXIS
     Dosage: 1 DF, QD
     Route: 065
     Dates: start: 201610
  12. PEGASPARGASE [Suspect]
     Active Substance: PEGASPARGASE
     Indication: ACUTE LYMPHOCYTIC LEUKAEMIA
     Dosage: UNK
     Route: 065
  13. CYTARABINE. [Suspect]
     Active Substance: CYTARABINE
     Indication: ACUTE LYMPHOCYTIC LEUKAEMIA
     Route: 037
  14. CYCLOPHOSPHAMIDE. [Suspect]
     Active Substance: CYCLOPHOSPHAMIDE
     Indication: ACUTE LYMPHOCYTIC LEUKAEMIA
     Dosage: UNK
     Route: 065

REACTIONS (26)
  - Conjunctival oedema [Recovered/Resolved]
  - Iridocyclitis [Recovered/Resolved]
  - Fusarium infection [Recovered/Resolved]
  - Enterococcal bacteraemia [Recovered/Resolved]
  - Cranial nerve infection [Recovered/Resolved]
  - Cholecystitis acute [Recovered/Resolved]
  - Febrile neutropenia [Recovered/Resolved]
  - Skin necrosis [Recovered/Resolved]
  - Septic shock [Recovered/Resolved]
  - Neutropenia [Recovered/Resolved]
  - Herpes simplex [Recovered/Resolved]
  - Mucosal infection [Unknown]
  - Skin lesion [Recovered/Resolved]
  - C-reactive protein increased [Recovered/Resolved]
  - Vitreous floaters [Recovered/Resolved]
  - Pyrexia [Recovered/Resolved]
  - Chorioretinal disorder [Recovered/Resolved]
  - Visual acuity reduced [Recovered/Resolved]
  - Hypotension [Recovered/Resolved]
  - Endophthalmitis [Recovered/Resolved]
  - Eyelid oedema [Recovered/Resolved]
  - Iris adhesions [Recovered/Resolved]
  - Vitritis [Recovered/Resolved]
  - Eye pain [Recovered/Resolved]
  - Hyperaemia [Recovered/Resolved]
  - Eye abscess [Recovered/Resolved]

NARRATIVE: CASE EVENT DATE: 2016
